FAERS Safety Report 6985723-2 (Version None)
Quarter: 2010Q3

REPORT INFORMATION
  Report Type: 
  Country: None (occurrence: None)
  Receive Date: 20100915
  Receipt Date: 20100908
  Transmission Date: 20110219
  Serious: Yes (Life-Threatening, Other)
  Sender: FDA-Public Use
  Company Number: JP-CELGENEUS-087-21880-10090529

PATIENT
  Sex: Female

DRUGS (14)
  1. REVLIMID [Suspect]
     Indication: MULTIPLE MYELOMA
     Route: 048
     Dates: start: 20100820, end: 20100827
  2. DECADRON [Concomitant]
     Indication: MULTIPLE MYELOMA
     Route: 048
     Dates: start: 20100820, end: 20100823
  3. FUNGUARD [Concomitant]
     Indication: MULTIPLE MYELOMA
     Route: 051
     Dates: start: 20100708
  4. PANABATE [Concomitant]
     Indication: MULTIPLE MYELOMA
     Route: 051
     Dates: start: 20100723
  5. NEOPHAGEN [Concomitant]
     Indication: ASPARTATE AMINOTRANSFERASE INCREASED
     Route: 051
     Dates: start: 20100815
  6. NEOPHAGEN [Concomitant]
  7. ORGARAN [Concomitant]
     Indication: PROPHYLAXIS
     Route: 051
     Dates: start: 20100820
  8. MAGNESIUM OXIDE [Concomitant]
     Indication: PRODUCT USED FOR UNKNOWN INDICATION
     Route: 048
     Dates: start: 20100511, end: 20100830
  9. RISPERDAL [Concomitant]
     Indication: PROPHYLAXIS
     Route: 048
     Dates: start: 20100721, end: 20100830
  10. LOXOPROFEN [Concomitant]
     Indication: PRODUCT USED FOR UNKNOWN INDICATION
     Route: 048
     Dates: start: 20100804, end: 20100830
  11. PARIET [Concomitant]
     Indication: PROPHYLAXIS
     Route: 048
     Dates: start: 20100820, end: 20100830
  12. TELEMINSOFT [Concomitant]
     Indication: PRODUCT USED FOR UNKNOWN INDICATION
     Route: 054
     Dates: start: 20100827, end: 20100827
  13. WYSTAL [Concomitant]
     Indication: PROPHYLAXIS
     Route: 051
     Dates: start: 20100826, end: 20100831
  14. OMEPRAZOLE [Concomitant]
     Indication: PROPHYLAXIS
     Route: 051
     Dates: start: 20100831

REACTIONS (8)
  - ABSCESS [None]
  - CARDIOGENIC SHOCK [None]
  - CHOLECYSTITIS ACUTE [None]
  - PNEUMONIA [None]
  - PRINZMETAL ANGINA [None]
  - RENAL FAILURE ACUTE [None]
  - SEPTIC SHOCK [None]
  - VENTRICULAR EXTRASYSTOLES [None]
